FAERS Safety Report 11681461 (Version 1)
Quarter: 2015Q4

REPORT INFORMATION
  Report Type: Report from Study
  Country: US (occurrence: US)
  Receive Date: 20151029
  Receipt Date: 20151029
  Transmission Date: 20160304
  Serious: No
  Sender: FDA-Public Use
  Company Number: PHHY2014US081829

PATIENT
  Age: 7 Year
  Sex: Male

DRUGS (3)
  1. EXJADE [Suspect]
     Active Substance: DEFERASIROX
     Dosage: 500 OT, UNK
     Route: 065
     Dates: start: 20131106, end: 20140504
  2. EXJADE [Suspect]
     Active Substance: DEFERASIROX
     Indication: HAEMOSIDEROSIS
     Dosage: 500 OT, UNK
     Route: 048
     Dates: start: 20100121
  3. EXJADE [Suspect]
     Active Substance: DEFERASIROX
     Dosage: 500 OT, UNK
     Route: 065
     Dates: start: 20120814

REACTIONS (1)
  - Fatigue [Recovered/Resolved]

NARRATIVE: CASE EVENT DATE: 20140415
